FAERS Safety Report 21675711 (Version 1)
Quarter: 2022Q4

REPORT INFORMATION
  Report Type: Report from Study
  Country: US (occurrence: US)
  Receive Date: 20221202
  Receipt Date: 20221202
  Transmission Date: 20230112
  Serious: No
  Sender: FDA-Public Use
  Company Number: US-ABBVIE-22K-163-4481283-00

PATIENT
  Age: 82 Year
  Sex: Female
  Weight: 81.646 kg

DRUGS (1)
  1. HUMIRA [Suspect]
     Active Substance: ADALIMUMAB
     Indication: Rheumatoid arthritis
     Route: 058

REACTIONS (2)
  - Meniscus injury [Recovered/Resolved]
  - Ligament sprain [Unknown]

NARRATIVE: CASE EVENT DATE: 20210926
